FAERS Safety Report 8362881-9 (Version None)
Quarter: 2012Q2

REPORT INFORMATION
  Report Type: 
  Country: None (occurrence: None)
  Receive Date: 20120516
  Receipt Date: 20120508
  Transmission Date: 20120825
  Serious: Yes (Hospitalization)
  Sender: FDA-Public Use
  Company Number: DE-UCBSA-057003

PATIENT
  Sex: Female

DRUGS (6)
  1. LEVETIRACETAM [Suspect]
     Dosage: 500 MG
  2. RAMIPRIL [Concomitant]
  3. LEVOTHYROXINE SODIUM [Concomitant]
  4. VIMPAT [Suspect]
     Dosage: 100 MG
  5. FLUVASTATIN [Concomitant]
  6. PIRACETAM [Concomitant]

REACTIONS (2)
  - EPILEPSY [None]
  - HALLUCINATION [None]
